FAERS Safety Report 13606039 (Version 1)
Quarter: 2017Q2

REPORT INFORMATION
  Report Type: Spontaneous
  Country: US (occurrence: US)
  Receive Date: 20170602
  Receipt Date: 20170602
  Transmission Date: 20170830
  Serious: Yes (Life-Threatening, Hospitalization)
  Sender: FDA-Public Use
  Company Number: None

PATIENT
  Age: 83 Year
  Sex: Male

DRUGS (3)
  1. DABIGATRAN [Suspect]
     Active Substance: DABIGATRAN
     Indication: MITRAL VALVE REPAIR
     Route: 048
     Dates: start: 20161207, end: 20170516
  2. ASPIRIN. [Suspect]
     Active Substance: ASPIRIN
     Indication: CORONARY ARTERIAL STENT INSERTION
     Route: 048
     Dates: start: 20170109, end: 20170517
  3. DABIGATRAN [Suspect]
     Active Substance: DABIGATRAN
     Indication: ATRIAL FIBRILLATION
     Route: 048
     Dates: start: 20161207, end: 20170516

REACTIONS (11)
  - Atelectasis [None]
  - Blood pressure systolic decreased [None]
  - Lung infiltration [None]
  - Gastrointestinal haemorrhage [None]
  - Haemoglobin decreased [None]
  - Diverticulum [None]
  - Fatigue [None]
  - Anaemia [None]
  - Dizziness [None]
  - Headache [None]
  - Faeces discoloured [None]

NARRATIVE: CASE EVENT DATE: 20170516
